FAERS Safety Report 6931714-7 (Version None)
Quarter: 2010Q3

REPORT INFORMATION
  Report Type: 
  Country: None (occurrence: None)
  Receive Date: 20100813
  Receipt Date: 20100503
  Transmission Date: 20110219
  Serious: Yes (Other)
  Sender: FDA-Public Use
  Company Number: 1000013147

PATIENT
  Sex: Female
  Weight: 66.2252 kg

DRUGS (4)
  1. SAVELLA [Suspect]
     Dosage: ORAL
     Route: 048
     Dates: start: 20100119, end: 20100428
  2. ZYRTEC [Concomitant]
  3. FLEXERIL [Concomitant]
  4. SUDAFED 12 HOUR [Concomitant]

REACTIONS (1)
  - BLOOD PRESSURE INCREASED [None]
